FAERS Safety Report 19218616 (Version 1)
Quarter: 2021Q2

REPORT INFORMATION
  Report Type: Spontaneous
  Country: US (occurrence: US)
  Receive Date: 20210505
  Receipt Date: 20210505
  Transmission Date: 20210717
  Serious: Yes (Other)
  Sender: FDA-Public Use
  Company Number: US-FRESENIUS KABI-FK202104514

PATIENT
  Age: 10 Year
  Sex: Male

DRUGS (3)
  1. SULFADIAZINE. [Suspect]
     Active Substance: SULFADIAZINE
     Indication: DISSEMINATED TOXOPLASMOSIS
     Route: 065
  2. LEUCOVORIN CALCIUM (MANUFACTURER UNKNOWN) [Suspect]
     Active Substance: LEUCOVORIN CALCIUM
     Indication: DISSEMINATED TOXOPLASMOSIS
     Route: 065
  3. PYRIMETHAMINE [Suspect]
     Active Substance: PYRIMETHAMINE
     Indication: DISSEMINATED TOXOPLASMOSIS
     Route: 065

REACTIONS (1)
  - Crystalluria [Recovered/Resolved]
